FAERS Safety Report 5733432-X (Version None)
Quarter: 2008Q2

REPORT INFORMATION
  Report Type: 
  Country: None (occurrence: None)
  Receive Date: 20080509
  Receipt Date: 20080507
  Transmission Date: 20081010
  Serious: Yes (Death)
  Sender: FDA-Public Use
  Company Number: GB-ASTRAZENECA-2008GB00867

PATIENT
  Sex: Female

DRUGS (4)
  1. QUETIAPINE FUMARATE [Suspect]
     Indication: HYPOMANIA
     Route: 048
     Dates: start: 20070501
  2. ATORVASTATIN [Concomitant]
  3. METFORMIN HCL [Concomitant]
  4. CORACTEN (NIFEDIPINE) SR [Concomitant]

REACTIONS (1)
  - DEEP VEIN THROMBOSIS [None]
